FAERS Safety Report 19894439 (Version 1)
Quarter: 2021Q3

REPORT INFORMATION
  Report Type: Spontaneous
  Country: IT (occurrence: IT)
  Receive Date: 20210928
  Receipt Date: 20210928
  Transmission Date: 20211014
  Serious: Yes (Hospitalization, Other)
  Sender: FDA-Public Use
  Company Number: IT-JAZZ-2021-IT-018125

PATIENT
  Sex: Male
  Weight: 90 kg

DRUGS (2)
  1. DENOSUMAB [Suspect]
     Active Substance: DENOSUMAB
     Indication: BLADDER CANCER
     Dosage: 120 MILLIGRAM
     Dates: start: 20210810, end: 20210810
  2. ZEPZELCA [Suspect]
     Active Substance: LURBINECTEDIN
     Indication: BLADDER CANCER
     Dosage: 6.4 MILLIGRAM
     Route: 042
     Dates: start: 20210803, end: 20210824

REACTIONS (1)
  - Embolism [Unknown]
